FAERS Safety Report 9585542 (Version 1)
Quarter: 2013Q4

REPORT INFORMATION
  Report Type: Spontaneous
  Country: DE (occurrence: DE)
  Receive Date: 20131003
  Receipt Date: 20131003
  Transmission Date: 20140711
  Serious: Yes (Hospitalization)
  Sender: FDA-Public Use
  Company Number: DE-BIOGENIDEC-2013BI094987

PATIENT
  Age: 46 Year
  Sex: Female

DRUGS (2)
  1. TYSABRI [Suspect]
     Indication: MULTIPLE SCLEROSIS
     Route: 042
     Dates: start: 20130301, end: 20130501
  2. FAMPYRA [Concomitant]
     Indication: GAIT DISTURBANCE

REACTIONS (6)
  - Cholecystitis [Recovered/Resolved]
  - Abdominal pain [Recovered/Resolved]
  - Abdominal rigidity [Recovered/Resolved]
  - Abdominal discomfort [Recovered/Resolved]
  - Abdominal pain upper [Recovered/Resolved]
  - Gastrointestinal sounds abnormal [Recovered/Resolved]
